FAERS Safety Report 15847593 (Version 9)
Quarter: 2021Q2

REPORT INFORMATION
  Report Type: Other
  Country: DE (occurrence: DE)
  Receive Date: 20190121
  Receipt Date: 20210427
  Transmission Date: 20210716
  Serious: Yes (Other)
  Sender: FDA-Public Use
  Company Number: DE-ROCHE-2245668

PATIENT
  Age: 44 Year
  Sex: Female

DRUGS (18)
  1. OCREVUS [Suspect]
     Active Substance: OCRELIZUMAB
     Route: 042
     Dates: start: 20190815
  2. CORTISONE [Suspect]
     Active Substance: CORTISONE
     Route: 042
     Dates: start: 20180525
  3. CORTISONE [Suspect]
     Active Substance: CORTISONE
     Route: 042
     Dates: start: 20181220
  4. OCREVUS [Suspect]
     Active Substance: OCRELIZUMAB
     Route: 042
     Dates: start: 20180525
  5. CORTISONE [Suspect]
     Active Substance: CORTISONE
     Dosage: ONCE
     Route: 065
     Dates: start: 202010
  6. VESICARE [Concomitant]
     Active Substance: SOLIFENACIN SUCCINATE
  7. OCREVUS [Suspect]
     Active Substance: OCRELIZUMAB
     Route: 042
     Dates: start: 20201210
  8. CORTISONE [Suspect]
     Active Substance: CORTISONE
     Dosage: ONCE
     Route: 065
     Dates: start: 202010
  9. OCREVUS [Suspect]
     Active Substance: OCRELIZUMAB
     Dosage: MAINTENANCE DOSE?15/AUG/2019
     Route: 042
     Dates: start: 20181220
  10. OCREVUS [Suspect]
     Active Substance: OCRELIZUMAB
     Route: 042
     Dates: start: 20200727
  11. OCREVUS [Suspect]
     Active Substance: OCRELIZUMAB
     Indication: RELAPSING-REMITTING MULTIPLE SCLEROSIS
     Route: 042
     Dates: start: 20180509
  12. CORTISONE [Suspect]
     Active Substance: CORTISONE
     Dosage: 1X 1000 MG
     Route: 065
     Dates: start: 202007
  13. CORTISONE [Suspect]
     Active Substance: CORTISONE
     Indication: PREMEDICATION
     Route: 042
     Dates: start: 20180509
  14. GABAPENTIN. [Concomitant]
     Active Substance: GABAPENTIN
  15. CORTISONE [Suspect]
     Active Substance: CORTISONE
     Dosage: 3X 2000 MG
     Route: 065
     Dates: start: 202007
  16. CORTISONE [Suspect]
     Active Substance: CORTISONE
     Dosage: FIVE TIMES
     Route: 065
     Dates: start: 202010
  17. CORTISONE [Suspect]
     Active Substance: CORTISONE
     Dosage: ONCE
     Route: 065
     Dates: start: 202010
  18. VITAMIN D3 [Concomitant]
     Active Substance: CHOLECALCIFEROL

REACTIONS (10)
  - Inappropriate schedule of product administration [Unknown]
  - Prescribed overdose [Unknown]
  - Oral herpes [Recovered/Resolved]
  - Sleep disorder [Recovered/Resolved]
  - Malaise [Recovered/Resolved]
  - Paraesthesia [Not Recovered/Not Resolved]
  - Fluid retention [Recovered/Resolved]
  - B-lymphocyte count decreased [Not Recovered/Not Resolved]
  - Multiple sclerosis [Not Recovered/Not Resolved]
  - COVID-19 [Not Recovered/Not Resolved]

NARRATIVE: CASE EVENT DATE: 20180509
